FAERS Safety Report 5241282-6 (Version None)
Quarter: 2007Q1

REPORT INFORMATION
  Report Type: 
  Country: None (occurrence: None)
  Receive Date: 20070215
  Receipt Date: 20070215
  Transmission Date: 20070707
  Serious: Yes (Death)
  Sender: FDA-Public Use
  Company Number: None

PATIENT
  Age: 20 Year
  Sex: Female
  Weight: 63 kg

DRUGS (1)
  1. DEFIBIBROTIDE [Suspect]
     Indication: VENOOCCLUSIVE DISEASE
     Dosage: 200-300MG Q6H IV
     Route: 042
     Dates: start: 20070118, end: 20070122

REACTIONS (1)
  - HAEMORRHAGE [None]
